FAERS Safety Report 7653522-4 (Version None)
Quarter: 2011Q3

REPORT INFORMATION
  Report Type: 
  Country: None (occurrence: None)
  Receive Date: 20110803
  Receipt Date: 20110802
  Transmission Date: 20111222
  Serious: Yes (Other)
  Sender: FDA-Public Use
  Company Number: US-BAYER-2011-067931

PATIENT
  Sex: Female

DRUGS (1)
  1. MIRENA [Suspect]
     Indication: CONTRACEPTION
     Dosage: 20 ?G, CONT
     Route: 015
     Dates: start: 20110620

REACTIONS (9)
  - VAGINAL HAEMORRHAGE [None]
  - ABDOMINAL PAIN [None]
  - HEADACHE [None]
  - RASH [None]
  - DYSPAREUNIA [None]
  - LIBIDO DECREASED [None]
  - BREAST PAIN [None]
  - WEIGHT INCREASED [None]
  - ABDOMINAL DISTENSION [None]
